FAERS Safety Report 12463179 (Version 7)
Quarter: 2016Q4

REPORT INFORMATION
  Report Type: Spontaneous
  Country: US (occurrence: US)
  Receive Date: 20160614
  Receipt Date: 20161027
  Transmission Date: 20170207
  Serious: Yes (Hospitalization)
  Sender: FDA-Public Use
  Company Number: US-ALEXION-A201604138

PATIENT
  Sex: Male

DRUGS (3)
  1. SOLIRIS [Suspect]
     Active Substance: ECULIZUMAB
     Indication: PAROXYSMAL NOCTURNAL HAEMOGLOBINURIA
     Dosage: 1200 MG, Q12DAYS
     Route: 042
  2. SOLIRIS [Suspect]
     Active Substance: ECULIZUMAB
     Dosage: 300 MG, Q2W
     Route: 042
  3. LOVENOX [Concomitant]
     Active Substance: ENOXAPARIN SODIUM
     Indication: PRODUCT USED FOR UNKNOWN INDICATION
     Dosage: UNK
     Route: 065
     Dates: start: 20160604

REACTIONS (13)
  - Asthenia [Not Recovered/Not Resolved]
  - Gallbladder disorder [Unknown]
  - Blood bilirubin increased [Not Recovered/Not Resolved]
  - Fatigue [Not Recovered/Not Resolved]
  - Stoma site pain [Not Recovered/Not Resolved]
  - Jaundice [Not Recovered/Not Resolved]
  - Food intolerance [Not Recovered/Not Resolved]
  - Haematuria [Recovered/Resolved]
  - Incorrect dose administered [Not Recovered/Not Resolved]
  - Pyrexia [Recovered/Resolved]
  - Cholelithiasis [Unknown]
  - Rectal discharge [Not Recovered/Not Resolved]
  - Rash [Not Recovered/Not Resolved]

NARRATIVE: CASE EVENT DATE: 20160528
